FAERS Safety Report 25036529 (Version 2)
Quarter: 2025Q1

REPORT INFORMATION
  Report Type: Report from Study
  Country: US (occurrence: US)
  Receive Date: 20250304
  Receipt Date: 20250314
  Transmission Date: 20250409
  Serious: No
  Sender: JOHNSON AND JOHNSON
  Company Number: US-JNJFOC-20250271590

PATIENT
  Age: 47 Year
  Sex: Female

DRUGS (1)
  1. SIMPONI [Suspect]
     Active Substance: GOLIMUMAB
     Indication: Psoriatic arthropathy
     Dosage: STRENGTH-  50.00 MG / 0.50 ML
     Route: 058

REACTIONS (2)
  - Product dose omission issue [Unknown]
  - Device deployment issue [Unknown]

NARRATIVE: CASE EVENT DATE: 20250110
